FAERS Safety Report 11863035 (Version 2)
Quarter: 2017Q2

REPORT INFORMATION
  Report Type: Spontaneous
  Country: IT (occurrence: IT)
  Receive Date: 20151223
  Receipt Date: 20170426
  Transmission Date: 20170829
  Serious: Yes (Life-Threatening, Hospitalization, Disabling, Other)
  Sender: FDA-Public Use
  Company Number: IT-SUN PHARMACEUTICAL INDUSTRIES LTD-2015RR-108301

PATIENT

DRUGS (10)
  1. ATORVASTATIN [Suspect]
     Active Substance: ATORVASTATIN
     Indication: ISCHAEMIC HEART DISEASE PROPHYLAXIS
     Dosage: 80 MG
     Route: 065
  2. CLARITHROMYCIN. [Interacting]
     Active Substance: CLARITHROMYCIN
     Indication: PYREXIA
  3. LEVOTHYROXINE. [Concomitant]
     Active Substance: LEVOTHYROXINE
     Indication: PRODUCT USED FOR UNKNOWN INDICATION
     Dosage: 75 ?G
     Route: 065
  4. METOPROLOL. [Concomitant]
     Active Substance: METOPROLOL
     Indication: PRODUCT USED FOR UNKNOWN INDICATION
     Dosage: 100 MG 1/2 CP X 2
     Route: 065
  5. OMEPRAZOLE. [Concomitant]
     Active Substance: OMEPRAZOLE
     Indication: PRODUCT USED FOR UNKNOWN INDICATION
     Dosage: 20 MG
     Route: 065
  6. AMOXICILLIN/ CLAVULANIC ACID [Concomitant]
     Active Substance: AMOXICILLIN\CLAVULANIC ACID
     Indication: COUGH
     Dosage: UNK
     Route: 065
  7. CLOPIDOGREL [Concomitant]
     Active Substance: CLOPIDOGREL BISULFATE
     Indication: PRODUCT USED FOR UNKNOWN INDICATION
     Dosage: 75 MG
     Route: 065
  8. CLARITHROMYCIN. [Interacting]
     Active Substance: CLARITHROMYCIN
     Indication: COUGH
     Dosage: UNK
     Route: 065
  9. AMOXICILLIN/ CLAVULANIC ACID [Concomitant]
     Active Substance: AMOXICILLIN\CLAVULANIC ACID
     Indication: PYREXIA
  10. ACETYLSALYCILIC ACID [Concomitant]
     Indication: PRODUCT USED FOR UNKNOWN INDICATION
     Dosage: 100 MG
     Route: 065

REACTIONS (11)
  - Aspartate aminotransferase increased [Unknown]
  - Renal failure [Unknown]
  - Renal tubular disorder [Recovered/Resolved]
  - Drug interaction [Unknown]
  - Neutrophilia [Unknown]
  - Hypokalaemia [Recovered/Resolved]
  - Paraparesis [Recovered/Resolved]
  - Normochromic normocytic anaemia [Unknown]
  - Rhabdomyolysis [Recovered/Resolved]
  - Alanine aminotransferase increased [Unknown]
  - Myopathy [Unknown]
